FAERS Safety Report 10066703 (Version 1)
Quarter: 2014Q2

REPORT INFORMATION
  Report Type: Spontaneous
  Country: US (occurrence: None)
  Receive Date: 20140401
  Receipt Date: 20140401
  Transmission Date: 20141212
  Serious: Yes (Other)
  Sender: FDA-Public Use
  Company Number: PHEH2013US024878

PATIENT
  Sex: Female

DRUGS (1)
  1. EXELON PATCH (RIVASTIGMINE) TRANS-THERAPEUTIC-SYSTEM [Suspect]
     Dosage: 4.6 MG(PATCH 5 CM2),TRANSDERMAL

REACTIONS (1)
  - Syncope [None]
